FAERS Safety Report 9647156 (Version 2)
Quarter: 2013Q4

REPORT INFORMATION
  Report Type: Spontaneous
  Country: US (occurrence: US)
  Receive Date: 20131027
  Receipt Date: 20131027
  Transmission Date: 20140711
  Serious: Yes (Hospitalization, Other)
  Sender: FDA-Public Use
  Company Number: US-NAPPMUNDI-USA-2013-0105625

PATIENT
  Sex: Female

DRUGS (12)
  1. OXYCONTIN (NDA 22-272) [Suspect]
     Indication: BACK DISORDER
     Dosage: 80 MG, PM
     Route: 048
  2. OXYCONTIN (NDA 22-272) [Suspect]
     Dosage: 160 MG, UNK
     Route: 048
  3. DILAUDID TABLET [Concomitant]
  4. MS CONTIN TABLETS [Concomitant]
     Dosage: 100 MG, UNK
     Route: 048
  5. OXYCODONE HCL IMMEDIATE RELEASE (91-490) [Concomitant]
     Dosage: 30 MG, Q6H PRN
     Route: 048
  6. AMITRIPTYLINE [Concomitant]
     Dosage: 100 MG, UNK
     Route: 048
  7. SOMA [Concomitant]
     Dosage: 350 MG, BID PRN
     Route: 048
  8. XANAX [Concomitant]
     Dosage: 1 MG, TID
     Route: 048
  9. IBUPROFEN [Concomitant]
     Dosage: 600 MG, TID
  10. NEXIUM                             /01479302/ [Concomitant]
     Dosage: 40 MG, DAILY
  11. NEURONTIN [Concomitant]
     Dosage: 600 MG, TID
     Route: 048
  12. METHADONE [Concomitant]
     Dosage: 10 MG, TID
     Route: 048

REACTIONS (3)
  - Drug withdrawal syndrome [Unknown]
  - Drug dependence [Unknown]
  - Drug abuse [Unknown]
